FAERS Safety Report 17469476 (Version 2)
Quarter: 2020Q1

REPORT INFORMATION
  Report Type: Report from Study
  Country: None (occurrence: US)
  Receive Date: 20200227
  Receipt Date: 20200318
  Transmission Date: 20200409
  Serious: Yes (Hospitalization)
  Sender: FDA-Public Use
  Company Number: US-ABBVIE-20P-163-3286394-00

PATIENT
  Age: 76 Year
  Sex: Male
  Weight: 80.7 kg

DRUGS (40)
  1. FLUTICASONE. [Concomitant]
     Active Substance: FLUTICASONE
     Indication: ALLERGY PROPHYLAXIS
     Route: 045
     Dates: start: 20190515
  2. PROCHLORPERAZINE. [Concomitant]
     Active Substance: PROCHLORPERAZINE
     Indication: PROPHYLAXIS OF NAUSEA AND VOMITING
     Dosage: 5-10
     Route: 048
     Dates: start: 20191115
  3. AMIODARONE [Concomitant]
     Active Substance: AMIODARONE
     Indication: SUPRAVENTRICULAR TACHYCARDIA
     Route: 048
     Dates: start: 20190918
  4. FILGRASTIM [Concomitant]
     Active Substance: FILGRASTIM
     Dosage: UG
     Route: 058
     Dates: start: 20191010, end: 20191010
  5. METOPROLOL TARTRATE. [Concomitant]
     Active Substance: METOPROLOL TARTRATE
     Indication: HYPERTENSION
     Route: 048
     Dates: start: 20180705
  6. METOPROLOL SUCCINATE. [Concomitant]
     Active Substance: METOPROLOL SUCCINATE
     Indication: HYPERTENSION
     Route: 048
     Dates: start: 20180705, end: 20200218
  7. POTASSIUM CHLORIDE. [Concomitant]
     Active Substance: POTASSIUM CHLORIDE
     Indication: MINERAL SUPPLEMENTATION
     Route: 048
     Dates: start: 20180821
  8. EMLA (LIDOCAINE-PRILOCAINE) CREAM [Concomitant]
     Indication: PAIN PROPHYLAXIS
     Dosage: 2.5-2.5
     Route: 061
     Dates: start: 20190807
  9. FUROSEMIDE. [Concomitant]
     Active Substance: FUROSEMIDE
     Indication: OEDEMA
     Route: 048
     Dates: start: 20190903, end: 20200303
  10. POLYETHYLENE GLYCOL [Concomitant]
     Active Substance: POLYETHYLENE GLYCOLS
     Indication: CONSTIPATION
     Route: 048
     Dates: start: 20191125
  11. TRAMADOL HCL [Concomitant]
     Active Substance: TRAMADOL HYDROCHLORIDE
     Indication: BACK PAIN
     Route: 048
     Dates: start: 20200115
  12. FILGRASTIM [Concomitant]
     Active Substance: FILGRASTIM
     Dosage: UG
     Route: 058
     Dates: start: 20190930, end: 20190930
  13. VENETOCLAX. [Suspect]
     Active Substance: VENETOCLAX
     Indication: MYELODYSPLASTIC SYNDROME
     Dosage: DAYS 1-14 OF EACH 6 WEEK CYCLE
     Route: 048
     Dates: start: 20190730
  14. MAGNESIUM [Concomitant]
     Active Substance: MAGNESIUM
     Indication: MINERAL SUPPLEMENTATION
     Route: 048
     Dates: start: 20190226, end: 20200217
  15. VITAMIN D [Concomitant]
     Active Substance: VITAMIN D NOS
     Indication: OSTEOPOROSIS
     Route: 048
     Dates: start: 20200115
  16. DOCUSATE SODIUM. [Concomitant]
     Active Substance: DOCUSATE SODIUM
     Indication: CONSTIPATION PROPHYLAXIS
     Route: 048
     Dates: start: 20191203
  17. BISACODYL. [Concomitant]
     Active Substance: BISACODYL
     Indication: CONSTIPATION PROPHYLAXIS
     Route: 048
     Dates: start: 20191203
  18. FILGRASTIM [Concomitant]
     Active Substance: FILGRASTIM
     Dosage: UG
     Route: 058
     Dates: start: 20191003, end: 20191003
  19. FILGRASTIM [Concomitant]
     Active Substance: FILGRASTIM
     Dosage: UG
     Route: 058
     Dates: start: 20191219, end: 20191219
  20. FILGRASTIM [Concomitant]
     Active Substance: FILGRASTIM
     Dosage: UG
     Route: 058
     Dates: start: 20191223, end: 20191223
  21. FILGRASTIM [Concomitant]
     Active Substance: FILGRASTIM
     Dosage: UG
     Route: 058
     Dates: start: 20200122, end: 20200122
  22. LORATADINE. [Concomitant]
     Active Substance: LORATADINE
     Indication: ALLERGY PROPHYLAXIS
     Route: 048
     Dates: start: 20180703
  23. VITAMIN E [Concomitant]
     Active Substance: .ALPHA.-TOCOPHEROL
     Indication: VITAMIN SUPPLEMENTATION
     Route: 048
     Dates: start: 2018
  24. VITAMIN C [Concomitant]
     Active Substance: ASCORBIC ACID
     Indication: VITAMIN SUPPLEMENTATION
     Route: 048
     Dates: start: 2018
  25. ISAVUCONAZOLE [Concomitant]
     Active Substance: ISAVUCONAZOLE
     Indication: ANTIFUNGAL PROPHYLAXIS
     Route: 048
     Dates: start: 20191202
  26. POTASSIUM, SODIUM PHOSPHATES [Concomitant]
     Indication: HYPOPHOSPHATAEMIA
     Dosage: 280-160-250
     Route: 048
     Dates: start: 20200121
  27. FILGRASTIM [Concomitant]
     Active Substance: FILGRASTIM
     Dosage: UG
     Route: 058
     Dates: start: 20191105, end: 20191105
  28. FILGRASTIM [Concomitant]
     Active Substance: FILGRASTIM
     Dosage: UG
     Route: 058
     Dates: start: 20191114, end: 20191114
  29. FILGRASTIM [Concomitant]
     Active Substance: FILGRASTIM
     Dosage: UG
     Route: 058
     Dates: start: 20200113, end: 20200113
  30. AZACITIDINE. [Suspect]
     Active Substance: AZACITIDINE
     Indication: MYELODYSPLASTIC SYNDROME
     Dosage: DAYS 1-3 OF 6 WEEK CYCLE
     Route: 042
     Dates: start: 20190730
  31. MULTIVITAMIN (THERAGRAN) [Concomitant]
     Indication: VITAMIN SUPPLEMENTATION
     Route: 048
     Dates: start: 20190226
  32. HEPARIN [Concomitant]
     Active Substance: HEPARIN SODIUM
     Indication: CATHETER MANAGEMENT
     Route: 042
     Dates: start: 20190826
  33. OMEPRAZOLE. [Concomitant]
     Active Substance: OMEPRAZOLE
     Indication: GASTROOESOPHAGEAL REFLUX DISEASE
     Route: 048
     Dates: start: 20190907
  34. FILGRASTIM [Concomitant]
     Active Substance: FILGRASTIM
     Dosage: UG
     Route: 058
     Dates: start: 20191214, end: 20191214
  35. FILGRASTIM [Concomitant]
     Active Substance: FILGRASTIM
     Dosage: UG
     Route: 058
     Dates: start: 20191226, end: 20191226
  36. FILGRASTIM [Concomitant]
     Active Substance: FILGRASTIM
     Dosage: UG
     Route: 058
     Dates: start: 20191102, end: 20191102
  37. FILGRASTIM [Concomitant]
     Active Substance: FILGRASTIM
     Dosage: UG
     Route: 058
     Dates: start: 20200127, end: 20200127
  38. LIDOCAINE. [Concomitant]
     Active Substance: LIDOCAINE
     Indication: BACK PAIN
     Route: 061
     Dates: start: 20191127
  39. ACYCLOVIR. [Concomitant]
     Active Substance: ACYCLOVIR
     Indication: ANTIVIRAL PROPHYLAXIS
     Route: 048
     Dates: start: 20191127
  40. FILGRASTIM [Concomitant]
     Active Substance: FILGRASTIM
     Indication: WHITE BLOOD CELL COUNT INCREASED
     Dosage: UG
     Route: 058
     Dates: start: 20190830, end: 20190903

REACTIONS (1)
  - Influenza [Recovered/Resolved]

NARRATIVE: CASE EVENT DATE: 20200217
